FAERS Safety Report 9302684 (Version 2)
Quarter: 2013Q2

REPORT INFORMATION
  Report Type: Spontaneous
  Country: US (occurrence: US)
  Receive Date: 20130522
  Receipt Date: 20130627
  Transmission Date: 20140414
  Serious: Yes (Other)
  Sender: FDA-Public Use
  Company Number: US-AMGEN-USASP2013033972

PATIENT
  Age: 75 Year
  Sex: Female

DRUGS (9)
  1. PROLIA [Suspect]
     Indication: OSTEOPOROSIS POSTMENOPAUSAL
  2. PLAVIX [Concomitant]
  3. LEVOXYL [Concomitant]
  4. SIMVASTATIN [Concomitant]
  5. RANITIDINE [Concomitant]
  6. OXYBUTYNIN [Concomitant]
  7. ESTRACE [Concomitant]
     Dates: start: 201212
  8. CLOBETASOL [Concomitant]
     Dates: start: 201212
  9. CALCIUM + VITAMIN D                /01483701/ [Concomitant]

REACTIONS (4)
  - Fracture delayed union [Unknown]
  - Greenstick fracture [Unknown]
  - Road traffic accident [Unknown]
  - Pain in extremity [Unknown]
